FAERS Safety Report 23355251 (Version 1)
Quarter: 2024Q1

REPORT INFORMATION
  Report Type: Spontaneous
  Country: IT (occurrence: IT)
  Receive Date: 20240102
  Receipt Date: 20240102
  Transmission Date: 20240410
  Serious: Yes (Other)
  Sender: FDA-Public Use
  Company Number: IT-ALKEM LABORATORIES LIMITED-IT-ALKEM-2023-14928

PATIENT
  Age: 37 Year
  Sex: Female

DRUGS (8)
  1. SIROLIMUS [Suspect]
     Active Substance: SIROLIMUS
     Indication: Acute myocardial infarction
     Dosage: UNK
     Route: 065
  2. TICAGRELOR [Suspect]
     Active Substance: TICAGRELOR
     Indication: Acute myocardial infarction
     Dosage: 180 MILLIGRAM
     Route: 065
  3. ASPIRIN [Suspect]
     Active Substance: ASPIRIN
     Indication: Acute myocardial infarction
     Dosage: 500 MILLIGRAM
     Route: 042
  4. EPTIFIBATIDE [Suspect]
     Active Substance: EPTIFIBATIDE
     Indication: Acute myocardial infarction
     Dosage: UNK, STANDARD DOSE
     Route: 065
  5. ENOXAPARIN [Suspect]
     Active Substance: ENOXAPARIN
     Indication: Acute myocardial infarction
     Dosage: 10000 INTERNATIONAL UNIT
     Route: 058
  6. HEPARIN [Suspect]
     Active Substance: HEPARIN SODIUM
     Indication: Acute myocardial infarction
     Dosage: UNK, STANDARD DOSE
     Route: 065
  7. TIROFIBAN [Suspect]
     Active Substance: TIROFIBAN
     Indication: Acute myocardial infarction
     Dosage: 0.4 MILLIGRAM/KILOGRAM
     Route: 042
  8. TIROFIBAN [Suspect]
     Active Substance: TIROFIBAN
     Dosage: UNK (0.1 MG/KG/MIN 96-TO-4 H PRIOR TO SURGERY)
     Route: 042

REACTIONS (4)
  - Postpartum haemorrhage [Unknown]
  - Uterine haemorrhage [Unknown]
  - Exposure during pregnancy [Unknown]
  - Off label use [Unknown]
